FAERS Safety Report 13137410 (Version 3)
Quarter: 2017Q2

REPORT INFORMATION
  Report Type: Report from Study
  Country: US (occurrence: US)
  Receive Date: 20170123
  Receipt Date: 20170620
  Transmission Date: 20170830
  Serious: Yes (Other)
  Sender: FDA-Public Use
  Company Number: US-AMGEN-USASL2017008456

PATIENT
  Sex: Male
  Weight: 82.54 kg

DRUGS (11)
  1. VSL 3 [Concomitant]
     Active Substance: PROBIOTICS NOS
     Dosage: UNK
     Dates: start: 20170116
  2. BUDESONIDE. [Concomitant]
     Active Substance: BUDESONIDE
     Dosage: 3 MG, UNK
     Dates: start: 20170515
  3. HUMIRA [Concomitant]
     Active Substance: ADALIMUMAB
     Dosage: UNK, 40 MG/0.81 ML
     Dates: start: 20170601
  4. AMITRIPTYLINE HCL [Concomitant]
     Active Substance: AMITRIPTYLINE
     Dosage: 25 MG, UNK
     Route: 048
     Dates: start: 20170601
  5. ASPIRIN. [Suspect]
     Active Substance: ASPIRIN
     Indication: PRODUCT USED FOR UNKNOWN INDICATION
     Dosage: UNK
     Route: 065
  6. IMODIUM [Concomitant]
     Active Substance: LOPERAMIDE HYDROCHLORIDE
     Dosage: UNK
     Dates: start: 20141003
  7. ENBREL [Suspect]
     Active Substance: ETANERCEPT
     Indication: ARTHRITIS
     Dosage: 50 MG, QWK
     Route: 058
     Dates: start: 20151231, end: 20160516
  8. GAS RELIEF [Concomitant]
     Active Substance: DIMETHICONE
     Dosage: UNK
     Dates: start: 20170116
  9. CYCLOBENZAPRINE HCL [Concomitant]
     Active Substance: CYCLOBENZAPRINE HYDROCHLORIDE
     Dosage: 10 MG, UNK
     Dates: start: 20170515
  10. THERATEARS ALLERGY EYE ITCH RELIEF [Concomitant]
     Dosage: UNK
     Dates: start: 20150202
  11. TYLENOL EXTRA STRENGTH [Concomitant]
     Active Substance: ACETAMINOPHEN
     Dosage: UNK, 500
     Route: 048
     Dates: start: 20170601

REACTIONS (4)
  - Colitis ulcerative [Unknown]
  - Fatigue [Unknown]
  - Musculoskeletal stiffness [Unknown]
  - Crohn^s disease [Unknown]
